FAERS Safety Report 10920568 (Version 1)
Quarter: 2015Q1

REPORT INFORMATION
  Report Type: Spontaneous
  Country: US (occurrence: None)
  Receive Date: 20150313
  Receipt Date: 20150313
  Transmission Date: 20150721
  Serious: No
  Sender: FDA-Public Use
  Company Number: None

PATIENT
  Age: 28 Year
  Sex: Female
  Weight: 67.13 kg

DRUGS (9)
  1. BUSPAR [Suspect]
     Active Substance: BUSPIRONE HYDROCHLORIDE
     Indication: ANXIETY
     Dosage: 1/2 PILL TWICE DAILY
     Route: 048
     Dates: start: 20150309, end: 20150312
  2. ZOLOFT [Concomitant]
     Active Substance: SERTRALINE HYDROCHLORIDE
  3. IBUPROPHEN [Concomitant]
     Active Substance: IBUPROFEN
  4. XANAX [Concomitant]
     Active Substance: ALPRAZOLAM
  5. BUSPAR [Suspect]
     Active Substance: BUSPIRONE HYDROCHLORIDE
     Indication: POST-TRAUMATIC STRESS DISORDER
     Dosage: 1/2 PILL TWICE DAILY
     Route: 048
     Dates: start: 20150309, end: 20150312
  6. MULTI VITAMIN [Concomitant]
     Active Substance: VITAMINS
  7. CHAMMOMILE TEA [Concomitant]
  8. FISH OIL GEL-TABS [Concomitant]
  9. BENADRYL [Concomitant]
     Active Substance: DIPHENHYDRAMINE HYDROCHLORIDE

REACTIONS (7)
  - Sleep talking [None]
  - Coordination abnormal [None]
  - Balance disorder [None]
  - Motor dysfunction [None]
  - Vision blurred [None]
  - Somnambulism [None]
  - Abnormal sleep-related event [None]

NARRATIVE: CASE EVENT DATE: 20150311
